FAERS Safety Report 9786562 (Version 2)
Quarter: 2014Q1

REPORT INFORMATION
  Report Type: Spontaneous
  Country: DE (occurrence: DE)
  Receive Date: 20131227
  Receipt Date: 20140321
  Transmission Date: 20141002
  Serious: Yes (Hospitalization, Other)
  Sender: FDA-Public Use
  Company Number: DE-PFIZER INC-2013366735

PATIENT
  Age: 53 Year
  Sex: Male

DRUGS (4)
  1. AZULFIDINE [Suspect]
     Indication: COLITIS ULCERATIVE
     Dosage: 3 G, UNK
  2. PHOSCORTIL [Concomitant]
     Indication: COLITIS ULCERATIVE
     Dosage: UNK
  3. ULTRACORTEN [Concomitant]
     Indication: COLITIS ULCERATIVE
     Dosage: 20 MG, UNK
  4. LIMBATRIL [Concomitant]
     Indication: COLITIS ULCERATIVE
     Dosage: UNK

REACTIONS (1)
  - Alveolitis [Recovered/Resolved]
